FAERS Safety Report 5099259-X (Version None)
Quarter: 2006Q3

REPORT INFORMATION
  Report Type: 
  Country: None (occurrence: None)
  Receive Date: 20060731
  Receipt Date: 20060501
  Transmission Date: 20061208
  Serious: Yes (Other)
  Sender: FDA-Public Use
  Company Number: US-2006-002917

PATIENT
  Age: 61 Year
  Sex: Female
  Weight: 86.2 kg

DRUGS (1)
  1. MAGNEVIST [Suspect]
     Indication: NUCLEAR MAGNETIC RESONANCE IMAGING
     Dosage: 18 ML, 1 DOSE, INTRAVENOUS
     Route: 042
     Dates: start: 20060214, end: 20060214

REACTIONS (4)
  - CHOKING SENSATION [None]
  - DYSPNOEA [None]
  - ORAL PRURITUS [None]
  - SENSATION OF FOREIGN BODY [None]
